FAERS Safety Report 7630090-4 (Version None)
Quarter: 2011Q3

REPORT INFORMATION
  Report Type: 
  Country: None (occurrence: None)
  Receive Date: 20110722
  Receipt Date: 20110708
  Transmission Date: 20111222
  Serious: Yes (Other)
  Sender: FDA-Public Use
  Company Number: US-UCBSA-033863

PATIENT
  Sex: Male

DRUGS (3)
  1. CIMZIA [Suspect]
     Indication: CROHN'S DISEASE
     Dosage: FREQ: EVERY 28 DAYS
     Route: 058
     Dates: start: 20090121
  2. CIMZIA [Suspect]
     Route: 058
  3. HYDROCODONE BITARTRATE [Suspect]

REACTIONS (5)
  - FALL [None]
  - WEIGHT FLUCTUATION [None]
  - CROHN'S DISEASE [None]
  - STERNAL FRACTURE [None]
  - NAUSEA [None]
